FAERS Safety Report 7770015-4 (Version None)
Quarter: 2011Q3

REPORT INFORMATION
  Report Type: 
  Country: None (occurrence: None)
  Receive Date: 20110922
  Receipt Date: 20100825
  Transmission Date: 20111222
  Serious: No
  Sender: FDA-Public Use
  Company Number: US-ASTRAZENECA-2007UW21486

PATIENT
  Age: 45 Year
  Sex: Female
  Weight: 101.6 kg

DRUGS (17)
  1. SEROQUEL [Suspect]
     Dosage: 150 MG TO 550 MG
     Route: 048
     Dates: start: 20040101, end: 20070101
  2. HALDOL [Concomitant]
     Dates: start: 19970101
  3. VALIUM [Concomitant]
     Route: 048
     Dates: start: 20000701
  4. SEROQUEL [Suspect]
     Indication: SCHIZOPHRENIA
     Dosage: 25-300 MG
     Route: 048
     Dates: start: 20040101, end: 20060101
  5. SEROQUEL [Suspect]
     Dosage: 150 MG TO 550 MG
     Route: 048
     Dates: start: 20040101, end: 20070101
  6. ABILIFY [Concomitant]
     Dates: start: 20090101
  7. GEODON [Concomitant]
     Dates: start: 20100101
  8. SEROQUEL [Suspect]
     Indication: BIPOLAR DISORDER
     Dosage: 25-300 MG
     Route: 048
     Dates: start: 20040101, end: 20060101
  9. SEROQUEL [Suspect]
     Indication: DEPRESSION
     Dosage: 25-300 MG
     Route: 048
     Dates: start: 20040101, end: 20060101
  10. SEROQUEL [Suspect]
     Dosage: 25 MG - 300 MG
     Route: 048
     Dates: start: 20040317
  11. THORAZINE [Concomitant]
     Dates: start: 19740101
  12. SEROQUEL [Suspect]
     Dosage: 25 MG - 300 MG
     Route: 048
     Dates: start: 20040317
  13. RISPERDAL [Concomitant]
     Indication: BIPOLAR DISORDER
     Dates: start: 20050101, end: 20050101
  14. SEROQUEL [Suspect]
     Dosage: 150 MG TO 550 MG
     Route: 048
     Dates: start: 20040101, end: 20070101
  15. VICODIN [Concomitant]
     Dates: start: 20000101
  16. SEROQUEL [Suspect]
     Dosage: 25 MG - 300 MG
     Route: 048
     Dates: start: 20040317
  17. PAXIL [Concomitant]
     Route: 048
     Dates: start: 20000701

REACTIONS (7)
  - ADHESION [None]
  - TYPE 2 DIABETES MELLITUS [None]
  - HYPERSENSITIVITY [None]
  - DIABETIC COMPLICATION [None]
  - HYPERGLYCAEMIA [None]
  - GLYCOSURIA [None]
  - OBESITY [None]
